FAERS Safety Report 14073949 (Version 5)
Quarter: 2017Q4

REPORT INFORMATION
  Report Type: Spontaneous
  Country: JP (occurrence: JP)
  Receive Date: 20171011
  Receipt Date: 20171024
  Transmission Date: 20180321
  Serious: Yes (Other)
  Sender: FDA-Public Use
  Company Number: JP-PFIZER INC-2017436823

PATIENT
  Sex: Female

DRUGS (2)
  1. METHOTREXATE SODIUM. [Suspect]
     Active Substance: METHOTREXATE SODIUM
     Indication: RHEUMATOID ARTHRITIS
     Dosage: UNK
     Route: 048
  2. ENBREL [Suspect]
     Active Substance: ETANERCEPT
     Indication: RHEUMATOID ARTHRITIS
     Dosage: UNK (ONCE IN 2 WEEKS)
     Route: 058

REACTIONS (6)
  - Joint dislocation [Unknown]
  - Sensitivity to weather change [Unknown]
  - Pain [Unknown]
  - Condition aggravated [Unknown]
  - Nasopharyngitis [Unknown]
  - Product use issue [Unknown]
